FAERS Safety Report 14319628 (Version 2)
Quarter: 2017Q4

REPORT INFORMATION
  Report Type: Spontaneous
  Country: JP (occurrence: JP)
  Receive Date: 20171222
  Receipt Date: 20171226
  Transmission Date: 20180321
  Serious: Yes (Death, Life-Threatening, Hospitalization, Other)
  Sender: FDA-Public Use
  Company Number: JP-SA-2017SA249384

PATIENT
  Age: 66 Year
  Sex: Male

DRUGS (3)
  1. BEVACIZUMAB. [Suspect]
     Active Substance: BEVACIZUMAB
     Indication: RECTAL ADENOCARCINOMA
     Route: 065
  2. CAPECITABINE. [Suspect]
     Active Substance: CAPECITABINE
     Indication: RECTAL ADENOCARCINOMA
     Route: 065
  3. OXALIPLATIN. [Suspect]
     Active Substance: OXALIPLATIN
     Indication: RECTAL ADENOCARCINOMA
     Route: 065

REACTIONS (9)
  - White blood cell count decreased [Fatal]
  - Disease progression [Fatal]
  - Acute myeloid leukaemia [Fatal]
  - Myeloblast count increased [Fatal]
  - Haemoglobin decreased [Fatal]
  - Myelodysplastic syndrome [Not Recovered/Not Resolved]
  - Pancytopenia [Unknown]
  - Bone marrow failure [Unknown]
  - Megakaryocytes increased [Fatal]
